FAERS Safety Report 11322783 (Version 1)
Quarter: 2015Q3

REPORT INFORMATION
  Report Type: Spontaneous
  Country: FR (occurrence: FR)
  Receive Date: 20150730
  Receipt Date: 20150730
  Transmission Date: 20151125
  Serious: Yes (Hospitalization)
  Sender: FDA-Public Use
  Company Number: FR-HOSPIRA-2871862

PATIENT
  Age: 13 Year
  Sex: Female
  Weight: 55 kg

DRUGS (2)
  1. PROPOFOL. [Suspect]
     Active Substance: PROPOFOL
     Indication: SEDATIVE THERAPY
     Dosage: NOT REPORTED
  2. IMIDAZOLE [Concomitant]
     Active Substance: IMIDAZOLE
     Indication: GASTROINTESTINAL CANDIDIASIS
     Dosage: NOT REPORTED

REACTIONS (2)
  - Hypoxia [Recovered/Resolved]
  - Foreign body aspiration [Recovered/Resolved]
